FAERS Safety Report 19811673 (Version 4)
Quarter: 2023Q4

REPORT INFORMATION
  Report Type: Report from Study
  Country: US (occurrence: US)
  Receive Date: 20210909
  Receipt Date: 20231025
  Transmission Date: 20240109
  Serious: No
  Sender: FDA-Public Use
  Company Number: US-DSJP-DSU-2021-129488AA

PATIENT
  Age: 65 Year
  Sex: Female

DRUGS (4)
  1. PEXIDARTINIB [Suspect]
     Active Substance: PEXIDARTINIB
     Indication: Synovitis
     Dosage: 200 MG, BID
     Route: 048
  2. PEXIDARTINIB [Suspect]
     Active Substance: PEXIDARTINIB
     Indication: Giant cell tumour of tendon sheath
     Dosage: 125 MG, BID
     Route: 048
     Dates: start: 2020
  3. PEXIDARTINIB [Suspect]
     Active Substance: PEXIDARTINIB
     Dosage: 125MG EVERY MORNING AND 250MG EVERY EVENING
     Route: 048
     Dates: start: 20210409
  4. PEXIDARTINIB [Suspect]
     Active Substance: PEXIDARTINIB
     Dosage: 1 CAPSULE BY MOUTH EVERY MORNING AND 2 CAPSULES BY MOUTH EVERY EVENING
     Route: 048

REACTIONS (8)
  - Orbital oedema [Recovered/Resolved]
  - Brain fog [Recovered/Resolved]
  - Dysgeusia [Recovered/Resolved]
  - Hair colour changes [Not Recovered/Not Resolved]
  - Abdominal pain [Not Recovered/Not Resolved]
  - Appendicitis [Not Recovered/Not Resolved]
  - Hepatic lesion [Not Recovered/Not Resolved]
  - Liver function test increased [Not Recovered/Not Resolved]

NARRATIVE: CASE EVENT DATE: 20230908
